FAERS Safety Report 6004561-0 (Version None)
Quarter: 2008Q4

REPORT INFORMATION
  Report Type: 
  Country: None (occurrence: None)
  Receive Date: 20081216
  Receipt Date: 20081210
  Transmission Date: 20090506
  Serious: Yes (Hospitalization)
  Sender: FDA-Public Use
  Company Number: US-ASTRAZENECA-2008UW27714

PATIENT
  Age: 71 Year
  Sex: Male
  Weight: 108.9 kg

DRUGS (1)
  1. CRESTOR [Suspect]
     Indication: BLOOD CHOLESTEROL INCREASED
     Route: 048
     Dates: start: 20060401, end: 20060601

REACTIONS (3)
  - FAECAL INCONTINENCE [None]
  - MYALGIA [None]
  - PARALYSIS [None]
